FAERS Safety Report 8957121 (Version 1)
Quarter: 2012Q4

REPORT INFORMATION
  Report Type: Report from Study
  Country: US (occurrence: US)
  Receive Date: 20121211
  Receipt Date: 20121211
  Transmission Date: 20130627
  Serious: Yes (Hospitalization)
  Sender: FDA-Public Use
  Company Number: US-JNJFOC-20121203193

PATIENT

DRUGS (3)
  1. DOXORUBICIN HYDROCHLORIDE (DOXIL) [Suspect]
     Indication: MULTIPLE MYELOMA
     Dosage: 30 or 40 mg/m2 on day 1, 4 cycles
     Route: 042
     Dates: start: 20080522
  2. REVLIMID [Suspect]
     Indication: MULTIPLE MYELOMA
     Dosage: days 1-21
     Route: 048
     Dates: start: 20080522
  3. DEXAMETHASONE [Suspect]
     Indication: MULTIPLE MYELOMA
     Dosage: days 1- 4
     Route: 048
     Dates: start: 20080522

REACTIONS (2)
  - Deep vein thrombosis [Recovered/Resolved]
  - Hypoxia [Recovered/Resolved]
